FAERS Safety Report 5310018-2 (Version None)
Quarter: 2007Q2

REPORT INFORMATION
  Report Type: 
  Country: None (occurrence: None)
  Receive Date: 20070427
  Receipt Date: 20070426
  Transmission Date: 20071010
  Serious: Yes (Hospitalization)
  Sender: FDA-Public Use
  Company Number: US-GLAXOSMITHKLINE-A0579638A

PATIENT
  Age: 17 Year
  Sex: Male
  Weight: 57.7 kg

DRUGS (4)
  1. PAXIL [Suspect]
     Indication: ANXIETY
     Dosage: 20MG AT NIGHT
     Route: 048
     Dates: start: 20030101, end: 20040830
  2. PAXIL CR [Suspect]
     Indication: EMOTIONAL DISORDER
     Route: 048
     Dates: start: 20040722, end: 20040830
  3. ATIVAN [Concomitant]
     Dates: start: 20040722
  4. ADDERALL 10 [Concomitant]
     Dates: end: 20040901

REACTIONS (18)
  - BIPOLAR DISORDER [None]
  - DEPRESSION [None]
  - DRUG INEFFECTIVE [None]
  - ELEVATED MOOD [None]
  - EMOTIONAL DISTRESS [None]
  - FLIGHT OF IDEAS [None]
  - GRANDIOSITY [None]
  - HALLUCINATION, VISUAL [None]
  - HOMICIDAL IDEATION [None]
  - HYPOMANIA [None]
  - IMPULSIVE BEHAVIOUR [None]
  - MOOD SWINGS [None]
  - PARANOIA [None]
  - PSYCHOTIC DISORDER [None]
  - SKIN LACERATION [None]
  - SOCIAL AVOIDANT BEHAVIOUR [None]
  - SUICIDAL IDEATION [None]
  - SUICIDE ATTEMPT [None]
